FAERS Safety Report 12204625 (Version 1)
Quarter: 2016Q1

REPORT INFORMATION
  Report Type: Spontaneous
  Country: US (occurrence: US)
  Receive Date: 20160323
  Receipt Date: 20160323
  Transmission Date: 20160526
  Serious: No
  Sender: FDA-Public Use
  Company Number: US-WARNER CHILCOTT, LLC-1049496

PATIENT
  Age: 64 Year
  Sex: Female

DRUGS (10)
  1. ESTRACE [Suspect]
     Active Substance: ESTRADIOL
     Indication: MENOPAUSE
     Route: 067
     Dates: start: 201506, end: 2015
  2. TENORMIN [Concomitant]
     Active Substance: ATENOLOL
  3. FENOFIBRATE. [Concomitant]
     Active Substance: FENOFIBRATE
  4. ZOCOR [Concomitant]
     Active Substance: SIMVASTATIN
  5. NORCO [Concomitant]
     Active Substance: ACETAMINOPHEN\HYDROCODONE BITARTRATE
  6. VITAMIN B [Concomitant]
     Active Substance: VITAMIN B
  7. VITAMIN D [Concomitant]
     Active Substance: CHOLECALCIFEROL
  8. LISINOPRIL. [Concomitant]
     Active Substance: LISINOPRIL
  9. AMBIEN [Concomitant]
     Active Substance: ZOLPIDEM TARTRATE
  10. IRON [Concomitant]
     Active Substance: IRON

REACTIONS (1)
  - Anorgasmia [Recovered/Resolved]

NARRATIVE: CASE EVENT DATE: 201507
